FAERS Safety Report 7980810-4 (Version None)
Quarter: 2011Q4

REPORT INFORMATION
  Report Type: 
  Country: None (occurrence: None)
  Receive Date: 20111214
  Receipt Date: 20111213
  Transmission Date: 20120403
  Serious: Yes (Other)
  Sender: FDA-Public Use
  Company Number: BR-ABBOTT-10P-020-0690733-00

PATIENT
  Sex: Female
  Weight: 73 kg

DRUGS (20)
  1. RALOXIFENE HYDROCHLORIDE [Concomitant]
     Indication: RHEUMATOID ARTHRITIS
     Route: 048
  2. OMEPRAZOLE [Concomitant]
     Indication: GASTRIC DISORDER
     Route: 048
  3. SIMVASTATIN [Concomitant]
     Indication: BLOOD CHOLESTEROL
     Route: 048
  4. LEFLUNOMIDE [Concomitant]
     Indication: RHEUMATOID ARTHRITIS
     Route: 048
  5. HUMIRA [Suspect]
  6. CYCLOBENZAPRINE [Concomitant]
     Indication: MUSCLE DISORDER
     Route: 048
  7. TRAMADOL CHLORHYDRATE [Concomitant]
     Indication: PAIN
     Route: 048
  8. HYDROCHLOROTHIAZIDE [Concomitant]
     Indication: HYPERTENSION
  9. TRAMADOL HCL [Concomitant]
     Indication: PAIN
     Route: 048
  10. METHOTREXATE [Concomitant]
     Indication: RHEUMATOID ARTHRITIS
     Route: 048
  11. HUMIRA [Suspect]
     Indication: RHEUMATOID ARTHRITIS
     Route: 058
     Dates: start: 20090806
  12. OMEPRAZOLE [Concomitant]
     Indication: PROPHYLAXIS
  13. CYCLOBENZAPRINE HCL [Concomitant]
     Indication: TENDON DISORDER
     Route: 048
  14. DEFLAZACORT [Concomitant]
     Indication: RHEUMATOID ARTHRITIS
     Route: 048
  15. BROMAZEPAM [Concomitant]
     Indication: MUSCLE RELAXANT THERAPY
     Route: 048
  16. ACETAMINOPHEN [Concomitant]
     Indication: ARTHRALGIA
  17. METFORMIN HCL [Concomitant]
     Indication: DIABETES MELLITUS
     Dosage: 500MG DAILY
     Route: 048
  18. CAPTOPRIL [Concomitant]
     Indication: BLOOD PRESSURE
     Route: 048
  19. CAPTOPRIL [Concomitant]
     Indication: HYPERTENSION
  20. HYDROCHLOROTHIAZIDE [Concomitant]
     Indication: DIURETIC THERAPY
     Route: 048

REACTIONS (7)
  - PAIN IN EXTREMITY [None]
  - ERYTHEMA [None]
  - DEAFNESS [None]
  - PAIN [None]
  - FOOT DEFORMITY [None]
  - DEAFNESS UNILATERAL [None]
  - ARTHRALGIA [None]
